FAERS Safety Report 10703564 (Version 4)
Quarter: 2015Q2

REPORT INFORMATION
  Report Type: Report from Study
  Country: BR (occurrence: BR)
  Receive Date: 20150112
  Receipt Date: 20150414
  Transmission Date: 20150821
  Serious: Yes (Life-Threatening, Hospitalization, Disabling, Other)
  Sender: FDA-Public Use
  Company Number: PHHY2015BR002082

PATIENT
  Age: 58 Year
  Sex: Female
  Weight: 78 kg

DRUGS (1)
  1. SANDOSTATIN LAR DEPOT [Suspect]
     Active Substance: OCTREOTIDE ACETATE
     Indication: ACROMEGALY
     Dosage: 1 DF, EACH 8 WEEKS
     Route: 065
     Dates: start: 2014

REACTIONS (6)
  - Walking disability [Unknown]
  - Coma [Recovered/Resolved]
  - Lower limb fracture [Recovering/Resolving]
  - Upper limb fracture [Not Recovered/Not Resolved]
  - Road traffic accident [Unknown]
  - Malaise [Unknown]

NARRATIVE: CASE EVENT DATE: 20141220
